FAERS Safety Report 10061180 (Version 1)
Quarter: 2014Q2

REPORT INFORMATION
  Report Type: Report from Study
  Country: US (occurrence: US)
  Receive Date: 20140407
  Receipt Date: 20140407
  Transmission Date: 20141212
  Serious: Yes (Other)
  Sender: FDA-Public Use
  Company Number: US-ROCHE-1371874

PATIENT
  Age: 21 Year
  Sex: Female

DRUGS (11)
  1. NUTROPIN AQ [Suspect]
     Indication: HYPOPITUITARISM
     Route: 058
     Dates: start: 20130315
  2. SOLU-MEDROL [Concomitant]
     Route: 065
     Dates: start: 20121210
  3. CORTEF [Concomitant]
     Route: 048
     Dates: start: 20121210
  4. JUNEL FE [Concomitant]
     Route: 048
     Dates: start: 20121210
  5. SYNTHROID [Concomitant]
     Route: 048
     Dates: start: 20121210
  6. CYTOMEL [Concomitant]
     Route: 048
     Dates: start: 20121210
  7. ABILIFY [Concomitant]
     Dosage: 2 MG TABLET, 1/2 ORAL DAILY
     Route: 048
  8. FLUOXETINE HCL [Concomitant]
     Dosage: 40 MG CAPSULE, 2 ORAL DAILY
     Route: 048
  9. STRATTERA [Concomitant]
     Route: 048
  10. TRAZODONE HCL [Concomitant]
     Route: 048
  11. BUSPAR [Concomitant]
     Route: 048

REACTIONS (32)
  - Hypotension [Unknown]
  - Dizziness [Unknown]
  - Mania [Unknown]
  - Aspartate aminotransferase increased [Unknown]
  - Alanine aminotransferase increased [Unknown]
  - Depression [Unknown]
  - Appetite disorder [Unknown]
  - Constipation [Unknown]
  - Chills [Unknown]
  - Fatigue [Unknown]
  - Asthenia [Unknown]
  - Balance disorder [Unknown]
  - Fall [Unknown]
  - Sinus disorder [Unknown]
  - Cough [Unknown]
  - Dyspnoea [Unknown]
  - Abdominal pain [Unknown]
  - Haematochezia [Unknown]
  - Change of bowel habit [Unknown]
  - Dyspepsia [Unknown]
  - Dyspepsia [Unknown]
  - Nausea [Unknown]
  - Menstrual disorder [Unknown]
  - Back pain [Unknown]
  - Muscle spasms [Unknown]
  - Myalgia [Unknown]
  - Disturbance in attention [Unknown]
  - Anxiety [Unknown]
  - Temperature intolerance [Unknown]
  - Temperature intolerance [Unknown]
  - Thirst [Unknown]
  - Ill-defined disorder [Unknown]
